FAERS Safety Report 19057554 (Version 6)
Quarter: 2021Q4

REPORT INFORMATION
  Report Type: Spontaneous
  Country: US (occurrence: US)
  Receive Date: 20210325
  Receipt Date: 20211018
  Transmission Date: 20220303
  Serious: Yes (Hospitalization, Other)
  Sender: FDA-Public Use
  Company Number: US-ASTELLAS-2021US009687

PATIENT
  Age: 41 Year
  Sex: Female

DRUGS (8)
  1. XOSPATA [Suspect]
     Active Substance: GILTERITINIB
     Indication: Acute myeloid leukaemia
     Route: 048
     Dates: start: 20170331
  2. XOSPATA [Suspect]
     Active Substance: GILTERITINIB
     Route: 048
     Dates: start: 20201201
  3. XOSPATA [Suspect]
     Active Substance: GILTERITINIB
     Route: 048
     Dates: start: 202011
  4. XOSPATA [Suspect]
     Active Substance: GILTERITINIB
     Dosage: 40 MG, ONCE DAILY (20 MG, 2 TABS, ONCE A DAY)
     Route: 048
  5. XOSPATA [Suspect]
     Active Substance: GILTERITINIB
     Dosage: 80 MG (2 TABLETS A DAY), ONCE DAILY
     Route: 048
  6. AZITHROMYCIN ANHYDROUS [Suspect]
     Active Substance: AZITHROMYCIN ANHYDROUS
     Indication: Product used for unknown indication
     Dosage: UNK UNK, UNKNOWN FREQ.
     Route: 065
  7. PROTOPIC [Suspect]
     Active Substance: TACROLIMUS
     Indication: Bone marrow transplant
     Dosage: UNK UNK, UNKNOWN FREQ.
     Route: 061
  8. TACROLIMUS [Concomitant]
     Active Substance: TACROLIMUS
     Indication: Bone marrow transplant
     Dosage: UNK UNK, UNKNOWN FREQ.
     Route: 065
     Dates: start: 20170926, end: 20180503

REACTIONS (43)
  - Acoustic neuroma [Unknown]
  - Pyrexia [Recovered/Resolved]
  - Bacteraemia [Unknown]
  - Bone marrow failure [Unknown]
  - Complications of transplant surgery [Recovered/Resolved]
  - Acute kidney injury [Recovered/Resolved]
  - Weight increased [Recovered/Resolved]
  - Weight decreased [Recovered/Resolved]
  - Pulmonary congestion [Unknown]
  - Hypoxia [Unknown]
  - Upper respiratory tract infection [Unknown]
  - Dyspnoea [Recovered/Resolved]
  - Nausea [Recovered/Resolved]
  - Renal impairment [Recovered/Resolved]
  - Memory impairment [Not Recovered/Not Resolved]
  - Dyspnoea exertional [Recovering/Resolving]
  - Vertigo [Unknown]
  - Dizziness postural [Recovered/Resolved]
  - Lymphoedema [Unknown]
  - Rosacea [Not Recovered/Not Resolved]
  - Cough [Unknown]
  - Sinus disorder [Unknown]
  - Hot flush [Unknown]
  - Dysphagia [Unknown]
  - Diarrhoea [Unknown]
  - Migraine [Recovered/Resolved]
  - Pruritus [Unknown]
  - Early satiety [Unknown]
  - Hypotension [Unknown]
  - Skin burning sensation [Unknown]
  - Hypertension [Unknown]
  - Liver function test increased [Unknown]
  - Contusion [Unknown]
  - Decreased appetite [Recovered/Resolved]
  - Dry mouth [Unknown]
  - Application site pain [Unknown]
  - Weight increased [Recovering/Resolving]
  - Somnolence [Not Recovered/Not Resolved]
  - Balance disorder [Not Recovered/Not Resolved]
  - Blood potassium decreased [Unknown]
  - Weight decreased [Not Recovered/Not Resolved]
  - Viral infection [Not Recovered/Not Resolved]
  - Inappropriate schedule of product administration [Unknown]

NARRATIVE: CASE EVENT DATE: 20170427
